FAERS Safety Report 5008287-1 (Version None)
Quarter: 2006Q2

REPORT INFORMATION
  Report Type: 
  Country: None (occurrence: None)
  Receive Date: 20060523
  Receipt Date: 20060509
  Transmission Date: 20061013
  Serious: Yes (Hospitalization, Disabling)
  Sender: FDA-Public Use
  Company Number: GB-AMGEN-UK179069

PATIENT
  Sex: Female
  Weight: 82 kg

DRUGS (8)
  1. NEULASTA [Suspect]
     Indication: CHEMOTHERAPY
     Route: 065
     Dates: start: 20060317
  2. EPIRUBICIN [Suspect]
     Route: 065
     Dates: start: 20060317
  3. DOMPERIDONE [Concomitant]
     Route: 065
  4. DIFFLAM [Concomitant]
     Route: 061
  5. OILATUM EMOLLIENT [Concomitant]
     Route: 061
  6. CYCLOPHOSPHAMIDE [Concomitant]
     Route: 065
  7. METHOTREXATE [Concomitant]
     Route: 065
  8. FLUOROURACIL [Concomitant]
     Route: 065

REACTIONS (2)
  - CEREBRAL HAEMORRHAGE [None]
  - NEUTROPENIC SEPSIS [None]
